FAERS Safety Report 7722413-2 (Version None)
Quarter: 2011Q3

REPORT INFORMATION
  Report Type: 
  Country: None (occurrence: None)
  Receive Date: 20110831
  Receipt Date: 20110818
  Transmission Date: 20111222
  Serious: Yes (Hospitalization, Other)
  Sender: FDA-Public Use
  Company Number: FR-CUBIST-2010S1001121

PATIENT
  Age: 61 Year
  Sex: Male
  Weight: 73 kg

DRUGS (6)
  1. CUBICIN [Suspect]
     Indication: DEVICE RELATED INFECTION
     Route: 065
     Dates: start: 20071201, end: 20080318
  2. CUBICIN [Suspect]
     Route: 042
  3. IMIPENEM [Concomitant]
     Indication: PRODUCT USED FOR UNKNOWN INDICATION
  4. VANCOMYCIN [Concomitant]
     Indication: PRODUCT USED FOR UNKNOWN INDICATION
     Route: 042
  5. LINEZOLID [Concomitant]
     Indication: PRODUCT USED FOR UNKNOWN INDICATION
  6. DOXYCYCLINE HYCLATE [Concomitant]
     Indication: PRODUCT USED FOR UNKNOWN INDICATION
     Dosage: DOSE UNIT:U UNKNOWN
     Route: 065

REACTIONS (2)
  - CREATININE RENAL CLEARANCE DECREASED [None]
  - NEUROPATHY PERIPHERAL [None]
